FAERS Safety Report 9289106 (Version 1)
Quarter: 2013Q2

REPORT INFORMATION
  Report Type: Spontaneous
  Country: US (occurrence: US)
  Receive Date: 20130514
  Receipt Date: 20130514
  Transmission Date: 20140414
  Serious: No
  Sender: FDA-Public Use
  Company Number: US-ASTRAZENECA-2013SE30437

PATIENT
  Age: 63 Year
  Sex: Female
  Weight: 140.2 kg

DRUGS (9)
  1. NEXIUM [Suspect]
     Indication: GASTROOESOPHAGEAL REFLUX DISEASE
     Route: 048
     Dates: end: 2013
  2. PRILOSEC [Suspect]
     Indication: GASTROOESOPHAGEAL REFLUX DISEASE
     Route: 048
     Dates: start: 20130306
  3. LEVOTHYROXINE [Concomitant]
     Indication: THYROID DISORDER
  4. LOSAARTAN [Concomitant]
     Indication: HYPERTENSION
  5. NABUMETONE [Concomitant]
     Indication: ARTHRALGIA
  6. NABUMETONE [Concomitant]
     Indication: ARTHRALGIA
  7. ALLEGRA [Concomitant]
     Indication: HYPERSENSITIVITY
  8. RANITIDINE [Concomitant]
  9. CINNAMON [Concomitant]

REACTIONS (3)
  - Diabetes mellitus [Unknown]
  - Hypertension [Unknown]
  - Drug ineffective [Unknown]
